FAERS Safety Report 18710669 (Version 1)
Quarter: 2021Q1

REPORT INFORMATION
  Report Type: Spontaneous
  Country: US (occurrence: US)
  Receive Date: 20210107
  Receipt Date: 20210107
  Transmission Date: 20210419
  Serious: No
  Sender: FDA-Public Use
  Company Number: US-SA-2021SA003317

PATIENT

DRUGS (3)
  1. DUPIXENT [Suspect]
     Active Substance: DUPILUMAB
     Indication: DERMATITIS ATOPIC
     Dosage: 300 MG, QOW
     Route: 058
     Dates: start: 20201014, end: 2020
  2. AJOVY [Concomitant]
     Active Substance: FREMANEZUMAB-VFRM
  3. PHENTERMINE. [Concomitant]
     Active Substance: PHENTERMINE

REACTIONS (1)
  - Fear of injection [Not Recovered/Not Resolved]

NARRATIVE: CASE EVENT DATE: 202011
